FAERS Safety Report 15336282 (Version 2)
Quarter: 2019Q4

REPORT INFORMATION
  Report Type: Report from Study
  Country: US (occurrence: US)
  Receive Date: 20180830
  Receipt Date: 20191001
  Transmission Date: 20200122
  Serious: Yes (Hospitalization, Other)
  Sender: FDA-Public Use
  Company Number: US-ACTELION-A-NJ2017-153033

PATIENT
  Age: 56 Year
  Sex: Female

DRUGS (11)
  1. LYRICA [Concomitant]
     Active Substance: PREGABALIN
  2. RESTASIS [Concomitant]
     Active Substance: CYCLOSPORINE
  3. UPTRAVI [Suspect]
     Active Substance: SELEXIPAG
     Dosage: 1200 MCG, BID
     Route: 048
  4. UPTRAVI [Suspect]
     Active Substance: SELEXIPAG
     Dosage: 1000 MCG, BID
     Route: 048
  5. LOSARTAN. [Concomitant]
     Active Substance: LOSARTAN
  6. TRAMADOL. [Concomitant]
     Active Substance: TRAMADOL
  7. DULOXETINE. [Concomitant]
     Active Substance: DULOXETINE
  8. UPTRAVI [Suspect]
     Active Substance: SELEXIPAG
     Indication: PULMONARY ARTERIAL HYPERTENSION
     Dosage: 800 MCG, BID
     Route: 048
  9. OPSUMIT [Suspect]
     Active Substance: MACITENTAN
     Indication: PULMONARY ARTERIAL HYPERTENSION
     Dosage: 10 MG, QD
     Route: 048
     Dates: start: 20161108
  10. FUROSEMIDE. [Concomitant]
     Active Substance: FUROSEMIDE
  11. PANTOPRAZOLE [Concomitant]
     Active Substance: PANTOPRAZOLE

REACTIONS (7)
  - Memory impairment [Not Recovered/Not Resolved]
  - Hospitalisation [Unknown]
  - Product dose omission [Unknown]
  - Urinary bladder suspension [Unknown]
  - Headache [Unknown]
  - Chest pain [Not Recovered/Not Resolved]
  - Rectocele repair [Unknown]

NARRATIVE: CASE EVENT DATE: 201706
